FAERS Safety Report 8113928-6 (Version None)
Quarter: 2012Q1

REPORT INFORMATION
  Report Type: 
  Country: None (occurrence: None)
  Receive Date: 20120203
  Receipt Date: 20120131
  Transmission Date: 20120608
  Serious: Yes (Hospitalization)
  Sender: FDA-Public Use
  Company Number: US-PFIZER INC-2012026585

PATIENT
  Sex: Male
  Weight: 102.95 kg

DRUGS (3)
  1. CAVERJECT [Suspect]
     Indication: ERECTILE DYSFUNCTION
     Dosage: UNK
     Dates: start: 20111219
  2. LANTUS [Concomitant]
     Indication: DIABETES MELLITUS
     Dosage: UNK, 1X/DAY AT BEDTIME
  3. NOVOLOG [Concomitant]
     Indication: DIABETES MELLITUS
     Dosage: UNK

REACTIONS (3)
  - HERPES ZOSTER [None]
  - NASOPHARYNGITIS [None]
  - DRUG INEFFECTIVE [None]
